FAERS Safety Report 6898299-5 (Version None)
Quarter: 2010Q3

REPORT INFORMATION
  Report Type: 
  Country: None (occurrence: None)
  Receive Date: 20100802
  Receipt Date: 20070928
  Transmission Date: 20110219
  Serious: No
  Sender: FDA-Public Use
  Company Number: US-PFIZER INC-2007080868

PATIENT
  Sex: Female
  Weight: 75 kg

DRUGS (3)
  1. LYRICA [Suspect]
     Indication: HERPES ZOSTER
     Route: 048
     Dates: start: 20070901, end: 20070926
  2. VIVELLE [Interacting]
     Indication: HORMONE THERAPY
     Dosage: 2 EVERY 1 WEEKS
  3. ATIVAN [Concomitant]
     Route: 048

REACTIONS (8)
  - DIZZINESS [None]
  - DRUG INTERACTION [None]
  - FEELING ABNORMAL [None]
  - HOT FLUSH [None]
  - ILL-DEFINED DISORDER [None]
  - SOMNOLENCE [None]
  - TREMOR [None]
  - UNEVALUABLE EVENT [None]
